FAERS Safety Report 16402040 (Version 1)
Quarter: 2019Q2

REPORT INFORMATION
  Report Type: Spontaneous
  Country: CN (occurrence: CN)
  Receive Date: 20190607
  Receipt Date: 20190607
  Transmission Date: 20190711
  Serious: Yes (Other)
  Sender: FDA-Public Use
  Company Number: PHHY2019CN124380

PATIENT
  Age: 21 Year
  Sex: Female

DRUGS (1)
  1. VORICONAZOLE. [Suspect]
     Active Substance: VORICONAZOLE
     Indication: PRODUCT USED FOR UNKNOWN INDICATION
     Route: 042

REACTIONS (7)
  - Mucosal ulceration [Unknown]
  - Necrosis [Unknown]
  - Skin mass [Unknown]
  - Pyrexia [Unknown]
  - Visual impairment [Unknown]
  - Nasal congestion [Unknown]
  - Facial pain [Unknown]
